FAERS Safety Report 10358820 (Version 2)
Quarter: 2014Q3

REPORT INFORMATION
  Report Type: Spontaneous
  Country: FR (occurrence: FR)
  Receive Date: 20140804
  Receipt Date: 20140904
  Transmission Date: 20150326
  Serious: No
  Sender: FDA-Public Use
  Company Number: FR-AMGEN-FRASP2014057211

PATIENT
  Age: 36 Year
  Sex: Male
  Weight: 100 kg

DRUGS (4)
  1. XGEVA [Suspect]
     Active Substance: DENOSUMAB
     Indication: BONE GIANT CELL TUMOUR
     Dosage: UNK UNK, QWK
     Route: 065
     Dates: start: 201312
  2. CACIT D3 [Concomitant]
     Active Substance: CALCIUM\CHOLECALCIFEROL
     Dosage: UNK UNK, BID
     Route: 048
     Dates: start: 201312
  3. OMEPRAZOLE. [Concomitant]
     Active Substance: OMEPRAZOLE
     Dosage: UNK UNK, QD
  4. KETUM [Concomitant]
     Active Substance: KETOPROFEN
     Indication: BACK PAIN
     Dosage: UNK UNK, BID

REACTIONS (1)
  - Onychomadesis [Recovering/Resolving]

NARRATIVE: CASE EVENT DATE: 20140801
